FAERS Safety Report 11977183 (Version 2)
Quarter: 2016Q1

REPORT INFORMATION
  Report Type: Report from Study
  Country: CA (occurrence: CA)
  Receive Date: 20160129
  Receipt Date: 20160308
  Transmission Date: 20160526
  Serious: Yes (Other)
  Sender: FDA-Public Use
  Company Number: PHHY2015CA045627

PATIENT
  Age: 41 Year
  Sex: Female

DRUGS (1)
  1. GILENYA [Suspect]
     Active Substance: FINGOLIMOD HYDROCHLORIDE
     Indication: PRODUCT USED FOR UNKNOWN INDICATION
     Dosage: UNK
     Route: 048
     Dates: start: 20150415

REACTIONS (4)
  - Migraine [Unknown]
  - Headache [Unknown]
  - Multiple sclerosis relapse [Unknown]
  - Fatigue [Unknown]

NARRATIVE: CASE EVENT DATE: 2015
